FAERS Safety Report 10079000 (Version 1)
Quarter: 2014Q2

REPORT INFORMATION
  Report Type: Spontaneous
  Country: US (occurrence: US)
  Receive Date: 20140415
  Receipt Date: 20140415
  Transmission Date: 20141212
  Serious: Yes (Other)
  Sender: FDA-Public Use
  Company Number: US-THROMBOGENICS INC-JET-2014-237

PATIENT
  Age: 66 Year
  Sex: Female

DRUGS (1)
  1. JETREA [Suspect]
     Indication: VITREOUS ADHESIONS
     Dosage: 0.125 MG, ONE TIME DOSE
     Route: 031
     Dates: start: 20130522, end: 20130522

REACTIONS (18)
  - Amaurosis [Recovering/Resolving]
  - Macular hole [Recovered/Resolved]
  - Disease progression [Recovered/Resolved]
  - Optic ischaemic neuropathy [Unknown]
  - Visual impairment [Unknown]
  - Macular oedema [Unknown]
  - Conjunctival haemorrhage [Unknown]
  - Vitreous floaters [Unknown]
  - Photopsia [Unknown]
  - Visual acuity reduced [Unknown]
  - Colour blindness acquired [Recovering/Resolving]
  - Pupillary reflex impaired [Recovered/Resolved]
  - Conjunctival hyperaemia [Recovered/Resolved]
  - Migraine [Unknown]
  - Vision blurred [Recovering/Resolving]
  - Pupils unequal [Not Recovered/Not Resolved]
  - Photophobia [Unknown]
  - Retinal tear [Unknown]
